FAERS Safety Report 5866476-8 (Version None)
Quarter: 2008Q3

REPORT INFORMATION
  Report Type: 
  Country: None (occurrence: None)
  Receive Date: 20080902
  Receipt Date: 20080902
  Transmission Date: 20090109
  Serious: Yes (Hospitalization)
  Sender: FDA-Public Use
  Company Number: PHEH1995US02820

PATIENT
  Sex: Female
  Weight: 49.94 kg

DRUGS (10)
  1. NEORAL [Suspect]
     Route: 048
     Dates: start: 19950807
  2. PEPCID [Concomitant]
  3. THYROID TAB [Concomitant]
  4. PREDNISONE TAB [Concomitant]
  5. BACTRIM DS [Concomitant]
  6. CLOTRIMAZOLE [Concomitant]
  7. ACYCLOVIR [Concomitant]
  8. CALCIUM CARBONATE (CALCIUM CARBONATE) [Concomitant]
  9. IMURAN [Concomitant]
  10. THYROID TAB [Concomitant]

REACTIONS (2)
  - HEPATIC ENZYME INCREASED [None]
  - TRANSPLANT REJECTION [None]
